FAERS Safety Report 5593695-0 (Version None)
Quarter: 2008Q1

REPORT INFORMATION
  Report Type: 
  Country: None (occurrence: None)
  Receive Date: 20080116
  Receipt Date: 20070223
  Transmission Date: 20080703
  Serious: Yes (Death, Life-Threatening)
  Sender: FDA-Public Use
  Company Number: LB-SANOFI-SYNTHELABO-A01200702100

PATIENT
  Age: 75 Year
  Sex: Female
  Weight: 78 kg

DRUGS (9)
  1. PERFALGAN [Concomitant]
     Indication: PYREXIA
     Dosage: 1 UNIT
     Route: 042
     Dates: start: 20070109, end: 20070112
  2. BISOLVAN [Concomitant]
     Indication: PNEUMONIA
     Route: 042
     Dates: start: 20070111, end: 20070123
  3. OMETON [Concomitant]
     Indication: ULCER
     Dosage: 40 MG
     Route: 042
     Dates: start: 20070110, end: 20070211
  4. AMIODARONE HCL [Concomitant]
     Indication: ARRHYTHMIA
     Dosage: 200 MG
     Route: 048
     Dates: start: 20070110, end: 20070212
  5. AMLODIPINE [Concomitant]
     Indication: HYPERTENSION
     Dosage: 5 MG
     Route: 048
     Dates: start: 20070110, end: 20070113
  6. PIRACETAM [Concomitant]
     Indication: CEREBROVASCULAR ACCIDENT
     Dosage: 12 G
     Route: 042
     Dates: start: 20070109, end: 20070210
  7. LOVENOX [Suspect]
     Indication: THROMBOSIS PROPHYLAXIS
     Dosage: 40 MG
     Route: 058
     Dates: start: 20070111, end: 20070210
  8. LIPANOR [Concomitant]
     Indication: DRUG USE FOR UNKNOWN INDICATION
     Dosage: 20 MG
     Route: 048
     Dates: start: 20070110, end: 20070113
  9. PLAVIX [Suspect]
     Indication: CEREBROVASCULAR ACCIDENT
     Route: 048
     Dates: start: 20070111, end: 20070112

REACTIONS (2)
  - PNEUMONIA [None]
  - SEPTIC SHOCK [None]
